FAERS Safety Report 9203081 (Version 1)
Quarter: 2013Q1

REPORT INFORMATION
  Report Type: Spontaneous
  Country: RU (occurrence: None)
  Receive Date: 20130328
  Receipt Date: 20130328
  Transmission Date: 20140127
  Serious: Yes (Hospitalization)
  Sender: FDA-Public Use
  Company Number: 2013-05563

PATIENT
  Age: 38 Year
  Sex: Female

DRUGS (5)
  1. PACLITAXEL (PACLITAXEL) [Suspect]
     Indication: OVARIAN CANCER
     Route: 042
     Dates: start: 20130314
  2. CARBOPLATIN (CARBOPLATIN) [Concomitant]
  3. QUAMATEL (FAMOTIDINE) [Concomitant]
  4. TAVEGIL (CLEMASTINE) [Concomitant]
  5. DEXAMETHASONE (DEXAMETHASONE SODIUM PHOSPHATE) [Concomitant]

REACTIONS (2)
  - Tremor [None]
  - Peripheral sensory neuropathy [None]
